FAERS Safety Report 10665605 (Version 5)
Quarter: 2015Q2

REPORT INFORMATION
  Report Type: Spontaneous
  Country: US (occurrence: US)
  Receive Date: 20141219
  Receipt Date: 20150429
  Transmission Date: 20150821
  Serious: Yes (Disabling, Other)
  Sender: FDA-Public Use
  Company Number: US-009507513-1108USA01965

PATIENT
  Sex: Male

DRUGS (4)
  1. PROSCAR [Suspect]
     Active Substance: FINASTERIDE
     Indication: ALOPECIA
     Dosage: 1/4 OF 5MG TABLET DAILY
     Route: 048
     Dates: start: 201011, end: 201101
  2. PROPECIA [Suspect]
     Active Substance: FINASTERIDE
     Indication: ALOPECIA
     Dosage: 1 MG, QD
     Route: 048
     Dates: start: 20101108, end: 20110320
  3. PROSCAR [Suspect]
     Active Substance: FINASTERIDE
     Dosage: 1/4 OF 5MG TABLET DAILY
     Route: 048
     Dates: start: 201101, end: 201103
  4. FINASTERIDE. [Suspect]
     Active Substance: FINASTERIDE
     Indication: ALOPECIA
     Dosage: 1 MG, UNK
     Route: 048
     Dates: start: 20101108, end: 201103

REACTIONS (28)
  - Urine flow decreased [Unknown]
  - Wrong technique in drug usage process [Unknown]
  - Decreased appetite [Unknown]
  - Erectile dysfunction [Not Recovered/Not Resolved]
  - Fatigue [Not Recovered/Not Resolved]
  - Semen volume decreased [Not Recovered/Not Resolved]
  - Hypogonadism male [Not Recovered/Not Resolved]
  - Epididymitis [Unknown]
  - Mood swings [Unknown]
  - Cognitive disorder [Unknown]
  - Sexual dysfunction [Not Recovered/Not Resolved]
  - Genital hypoaesthesia [Not Recovered/Not Resolved]
  - Pituitary tumour benign [Unknown]
  - Anxiety [Unknown]
  - Abnormal loss of weight [Unknown]
  - Insomnia [Unknown]
  - Weight increased [Unknown]
  - Gynaecomastia [Not Recovered/Not Resolved]
  - Ejaculation disorder [Not Recovered/Not Resolved]
  - Depression [Unknown]
  - Adverse event [Not Recovered/Not Resolved]
  - Erectile dysfunction [Not Recovered/Not Resolved]
  - Anhedonia [Unknown]
  - Organic erectile dysfunction [Not Recovered/Not Resolved]
  - Suicidal ideation [Unknown]
  - Asthenia [Unknown]
  - Drug administration error [Unknown]
  - Libido decreased [Not Recovered/Not Resolved]

NARRATIVE: CASE EVENT DATE: 2010
